FAERS Safety Report 23084783 (Version 1)
Quarter: 2023Q4

REPORT INFORMATION
  Report Type: Spontaneous
  Country: CN (occurrence: CN)
  Receive Date: 20231019
  Receipt Date: 20231019
  Transmission Date: 20240109
  Serious: Yes (Other)
  Sender: FDA-Public Use
  Company Number: CN-PFIZER INC-PV202300170639

PATIENT
  Age: 84 Year
  Sex: Female

DRUGS (2)
  1. TYGACIL [Suspect]
     Active Substance: TIGECYCLINE
     Indication: Anti-infective therapy
     Dosage: 50100 MG, 2X/DAY
     Route: 041
     Dates: start: 20230717
  2. SULFAMETHOXAZOLE [Concomitant]
     Active Substance: SULFAMETHOXAZOLE
     Indication: Anti-infective therapy
     Dosage: 3 DF, 2X/DAY
     Route: 048
     Dates: start: 20230719, end: 20230721

REACTIONS (2)
  - Coagulation time prolonged [Not Recovered/Not Resolved]
  - Off label use [Unknown]

NARRATIVE: CASE EVENT DATE: 20230717
